FAERS Safety Report 7885537-5 (Version None)
Quarter: 2011Q4

REPORT INFORMATION
  Report Type: 
  Country: None (occurrence: None)
  Receive Date: 20111102
  Receipt Date: 20110708
  Transmission Date: 20120403
  Serious: No
  Sender: FDA-Public Use
  Company Number: US-AMGEN-USASP2011029417

PATIENT
  Age: 51 Year
  Sex: Female
  Weight: 144.22 kg

DRUGS (1)
  1. ENBREL [Suspect]
     Indication: RHEUMATOID ARTHRITIS
     Dosage: 25 MG, 2 TIMES/WK
     Route: 058
     Dates: start: 20110401

REACTIONS (2)
  - RHEUMATOID ARTHRITIS [None]
  - MIGRAINE [None]
